FAERS Safety Report 5698544-8 (Version None)
Quarter: 2008Q2

REPORT INFORMATION
  Report Type: 
  Country: None (occurrence: None)
  Receive Date: 20080408
  Receipt Date: 20060822
  Transmission Date: 20081010
  Serious: No
  Sender: FDA-Public Use
  Company Number: US-BAYER-US-2006-024699

PATIENT
  Age: 73 Year
  Sex: Female

DRUGS (3)
  1. CLIMARA [Suspect]
     Indication: HORMONE REPLACEMENT THERAPY
     Dosage: UNIT DOSE: 0.05 MG
     Route: 062
     Dates: start: 19950101
  2. ZETIA [Concomitant]
     Indication: BLOOD CHOLESTEROL
  3. GLUCOPHAGE [Concomitant]
     Indication: DIABETES MELLITUS

REACTIONS (1)
  - APPLICATION SITE ERYTHEMA [None]
